FAERS Safety Report 8842457 (Version 2)
Quarter: 2012Q4

REPORT INFORMATION
  Report Type: 
  Country: US (occurrence: US)
  Receive Date: 20121016
  Receipt Date: 20121018
  Transmission Date: 20130627
  Serious: Yes (Hospitalization)
  Sender: FDA-Public Use
  Company Number: US-ASTRAZENECA-2012SE78203

PATIENT
  Age: 76 Year
  Sex: Male

DRUGS (3)
  1. TOPROL XL [Suspect]
     Route: 048
  2. NEXIUM [Suspect]
     Route: 048
  3. SPIRIVA [Suspect]

REACTIONS (2)
  - Oral candidiasis [Unknown]
  - Pneumonia [Unknown]
